FAERS Safety Report 11718874 (Version 2)
Quarter: 2017Q1

REPORT INFORMATION
  Report Type: Report from Study
  Country: US (occurrence: US)
  Receive Date: 20151109
  Receipt Date: 20170203
  Transmission Date: 20170428
  Serious: Yes (Death, Hospitalization, Disabling, Other)
  Sender: FDA-Public Use
  Company Number: US-KADMON PHARMACEUTICALS, LLC-KAD201505-001108

PATIENT
  Age: 65 Year
  Sex: Male
  Weight: 56.06 kg

DRUGS (41)
  1. RIBASPHERE [Suspect]
     Active Substance: RIBAVIRIN
     Indication: HEPATITIS C
     Dosage: 600 MG TAB AM AND 400 MG TAB PM. DOSE PACKET THAT CONTAINED BOTH DOSES
     Route: 048
     Dates: start: 20150328, end: 20150506
  2. LACTULOSE. [Concomitant]
     Active Substance: LACTULOSE
     Dosage: 10 GM/15 ML SOLUTION 15 ML QD (AS REQUIRED)
  3. XIFAXAN [Concomitant]
     Active Substance: RIFAXIMIN
     Route: 048
  4. K-TAB [Concomitant]
     Active Substance: POTASSIUM CHLORIDE
     Dosage: TABLET
     Route: 048
     Dates: start: 20150321
  5. XIFAXAN [Concomitant]
     Active Substance: RIFAXIMIN
     Dosage: TABLET
     Route: 048
     Dates: start: 20141031
  6. PANCREATIC ENZYMES (CREON) [Concomitant]
     Dosage: CAPSULE
     Route: 048
     Dates: start: 20150321
  7. BENTYL [Concomitant]
     Active Substance: DICYCLOMINE HYDROCHLORIDE
     Dates: start: 20130625
  8. RIBASPHERE [Suspect]
     Active Substance: RIBAVIRIN
     Route: 048
     Dates: start: 20150507, end: 20150612
  9. OMEPRAZOLE. [Concomitant]
     Active Substance: OMEPRAZOLE
     Dosage: TABLET
     Route: 048
     Dates: start: 20130625
  10. OXYCODONE IMMEDIATE RELEASE [Concomitant]
     Active Substance: OXYCODONE
     Indication: PAIN
     Dosage: TABLET
     Dates: start: 20150101
  11. LEVOBUNOLOL [Concomitant]
     Active Substance: LEVOBUNOLOL
     Dosage: SOLUTION
     Route: 047
     Dates: start: 20141031
  12. CIPRO [Concomitant]
     Active Substance: CIPROFLOXACIN HYDROCHLORIDE
     Dosage: TABLET
     Route: 048
     Dates: start: 20150512
  13. METOCLOPRAMIDE HCL [Concomitant]
     Active Substance: METOCLOPRAMIDE HYDROCHLORIDE
     Dosage: TABLET
  14. CREON CAPSULE [Concomitant]
     Indication: PANCREATITIS
     Dosage: WITH MEALS
     Route: 048
  15. OXYCODONE/ACETAMINOPHEN (PERCOCET) (TYLOX) [Concomitant]
     Indication: PAIN
     Dosage: TABLET
     Route: 048
     Dates: start: 20150321
  16. FUROSEMIDE. [Concomitant]
     Active Substance: FUROSEMIDE
     Route: 048
     Dates: start: 20150608
  17. ONDANSETRON [Concomitant]
     Active Substance: ONDANSETRON
     Dosage: DISPERSIBLE TABLET
  18. CILOXAN [Concomitant]
     Active Substance: CIPROFLOXACIN HYDROCHLORIDE
     Dosage: 0.3% SOLUTION, INTO AFFECTED EYE WHILE AWAKE (1 DROP, 1 IN 4 WEEK)
  19. LASIX [Concomitant]
     Active Substance: FUROSEMIDE
  20. LACTULOSE. [Concomitant]
     Active Substance: LACTULOSE
     Dates: start: 20150510
  21. OMEPRAZOLE. [Concomitant]
     Active Substance: OMEPRAZOLE
     Route: 048
  22. OMEPRAZOLE. [Concomitant]
     Active Substance: OMEPRAZOLE
     Route: 048
  23. XANAX [Concomitant]
     Active Substance: ALPRAZOLAM
     Indication: ANXIETY
     Dosage: TABLET
     Route: 048
     Dates: start: 20150101
  24. XIFAXAN [Concomitant]
     Active Substance: RIFAXIMIN
     Dosage: TABLET
     Route: 048
     Dates: start: 20150512
  25. PANCREATIC ENZYMES (CREON) [Concomitant]
     Dosage: CAPSULE
     Route: 048
     Dates: start: 20140421
  26. PROMETHAZINE HCL [Concomitant]
     Active Substance: PROMETHAZINE HYDROCHLORIDE
     Dosage: TABLET
  27. MEGACE [Concomitant]
     Active Substance: MEGESTROL ACETATE
  28. BENTYL [Concomitant]
     Active Substance: DICYCLOMINE HYDROCHLORIDE
     Dosage: CAPSULE
     Route: 048
     Dates: start: 20130625
  29. ZOFRAN [Concomitant]
     Active Substance: ONDANSETRON HYDROCHLORIDE
  30. LEVOBUNOLOL OPHTH 0.5 % [Concomitant]
     Dosage: SOLUTION
     Route: 047
     Dates: start: 20150419
  31. XANAX [Concomitant]
     Active Substance: ALPRAZOLAM
     Dosage: TABLET
     Dates: start: 20150512
  32. DICYCLOMINE HCL [Concomitant]
     Active Substance: DICYCLOMINE HYDROCHLORIDE
  33. MACROGOL [Concomitant]
     Active Substance: POLYETHYLENE GLYCOLS
     Dates: start: 201504
  34. FUROSEMIDE. [Concomitant]
     Active Substance: FUROSEMIDE
     Dosage: TABLET
     Route: 048
     Dates: start: 20150512
  35. VIEKIRA PAK [Suspect]
     Active Substance: DASABUVIR\OMBITASVIR\PARITAPREVIR\RITONAVIR
     Indication: HEPATITIS C
     Dosage: 3 PILLS IN AM AND 1 PILL IN PM
     Route: 048
     Dates: start: 20150328, end: 20150612
  36. LACTULOSE. [Concomitant]
     Active Substance: LACTULOSE
     Dates: start: 201504
  37. PRILOSEC 40 MG [Concomitant]
     Dosage: CAPSULE
     Route: 048
     Dates: start: 20130625
  38. REGLAN [Concomitant]
     Active Substance: METOCLOPRAMIDE HYDROCHLORIDE
     Dosage: TABLET
     Route: 048
     Dates: start: 20150321
  39. REGLAN [Concomitant]
     Active Substance: METOCLOPRAMIDE HYDROCHLORIDE
     Route: 048
  40. CREON [Concomitant]
     Active Substance: PANCRELIPASE AMYLASE\PANCRELIPASE LIPASE\PANCRELIPASE PROTEASE
  41. ALDACTONE [Concomitant]
     Active Substance: SPIRONOLACTONE
     Dosage: TABLET
     Route: 048
     Dates: start: 20150512

REACTIONS (24)
  - Pancreatitis acute [Recovered/Resolved]
  - Dysphagia [Unknown]
  - Amnesia [Unknown]
  - Iron deficiency anaemia [Unknown]
  - Asterixis [Unknown]
  - Chromaturia [Unknown]
  - Hypophagia [Unknown]
  - Ascites [Unknown]
  - Decreased appetite [Unknown]
  - Fatigue [Unknown]
  - Hepatic encephalopathy [Unknown]
  - Agitation [Unknown]
  - Hyperbilirubinaemia [Unknown]
  - Confusional state [Unknown]
  - Diarrhoea [Unknown]
  - Refusal of treatment by patient [Unknown]
  - Hepatic cirrhosis [Fatal]
  - Malaise [Unknown]
  - Hepatic failure [Fatal]
  - Malnutrition [Fatal]
  - Weight decreased [Fatal]
  - Jaundice [Not Recovered/Not Resolved]
  - Asthenia [Unknown]
  - Hypersomnia [Unknown]

NARRATIVE: CASE EVENT DATE: 20150418
